FAERS Safety Report 13626138 (Version 1)
Quarter: 2017Q2

REPORT INFORMATION
  Report Type: Spontaneous
  Country: US (occurrence: US)
  Receive Date: 20170531
  Receipt Date: 20170531
  Transmission Date: 20170830
  Serious: Yes (Other)
  Sender: FDA-Public Use
  Company Number: US-ASTELLAS-1222769

PATIENT
  Age: 74 Year
  Sex: Male
  Weight: 92.16 kg

DRUGS (13)
  1. CLEOCIN T [Concomitant]
     Active Substance: CLINDAMYCIN PHOSPHATE
     Route: 065
  2. LORAZEPAM. [Concomitant]
     Active Substance: LORAZEPAM
     Indication: NAUSEA
     Dosage: PRN
     Route: 048
  3. ONDANSETRON [Concomitant]
     Active Substance: ONDANSETRON
     Dosage: PRN
     Route: 060
  4. PEMETREXED. [Concomitant]
     Active Substance: PEMETREXED
     Route: 065
     Dates: start: 20130517
  5. DIOVAN [Concomitant]
     Active Substance: VALSARTAN
     Route: 048
  6. AVODART [Concomitant]
     Active Substance: DUTASTERIDE
     Route: 048
  7. DEXAMETHASONE. [Concomitant]
     Active Substance: DEXAMETHASONE
     Dosage: TWICE DAILY THE DAY BEFORE, OF AND AFTER EACH CHEMOTHERAPY CYCLE
     Route: 048
  8. PROCHLORPERAZINE MALEATE. [Concomitant]
     Active Substance: PROCHLORPERAZINE MALEATE
     Indication: NAUSEA
     Dosage: PRN
     Route: 048
  9. TARCEVA [Suspect]
     Active Substance: ERLOTINIB HYDROCHLORIDE
     Indication: NON-SMALL CELL LUNG CANCER
     Dosage: DAILY
     Route: 048
     Dates: start: 20130409, end: 20130430
  10. FOLIC ACID. [Concomitant]
     Active Substance: FOLIC ACID
     Route: 048
  11. CARBOPLATIN. [Concomitant]
     Active Substance: CARBOPLATIN
  12. COUMADIN [Concomitant]
     Active Substance: WARFARIN SODIUM
     Route: 048
  13. FLOMAX [Concomitant]
     Active Substance: TAMSULOSIN HYDROCHLORIDE
     Route: 048

REACTIONS (1)
  - Thrombosis [Recovered/Resolved]

NARRATIVE: CASE EVENT DATE: 20130429
